FAERS Safety Report 7031297-X (Version None)
Quarter: 2010Q4

REPORT INFORMATION
  Report Type: 
  Country: None (occurrence: None)
  Receive Date: 20101006
  Receipt Date: 20100917
  Transmission Date: 20110411
  Serious: Yes (Other)
  Sender: FDA-Public Use
  Company Number: B0677553A

PATIENT
  Age: 62 Year
  Sex: Male

DRUGS (1)
  1. ARTIST [Suspect]
     Indication: PRODUCT USED FOR UNKNOWN INDICATION
     Route: 065
     Dates: start: 20090808, end: 20090909

REACTIONS (1)
  - LIVER DISORDER [None]
